FAERS Safety Report 20075265 (Version 2)
Quarter: 2021Q4

REPORT INFORMATION
  Report Type: Spontaneous
  Country: AU (occurrence: AU)
  Receive Date: 20211116
  Receipt Date: 20211210
  Transmission Date: 20220303
  Serious: Yes (Hospitalization, Disabling, Other)
  Sender: FDA-Public Use
  Company Number: AU-MYLANLABS-2021M1084483

PATIENT
  Age: 76 Year
  Sex: Male

DRUGS (4)
  1. VALACYCLOVIR HYDROCHLORIDE [Suspect]
     Active Substance: VALACYCLOVIR HYDROCHLORIDE
     Indication: Antiviral treatment
     Dosage: 1 GRAM, TID
     Route: 048
  2. GANCICLOVIR [Suspect]
     Active Substance: GANCICLOVIR
     Indication: Antiviral treatment
     Dosage: 4 MG/0.1 ML
  3. ACYCLOVIR [Suspect]
     Active Substance: ACYCLOVIR
     Indication: Antiviral treatment
     Dosage: 7.5 MILLIGRAM/KILOGRAM
     Route: 042
  4. FOSCARNET [Suspect]
     Active Substance: FOSCARNET
     Indication: Antiviral treatment
     Dosage: 2.4 MG/0.1 ML

REACTIONS (4)
  - Drug ineffective [Unknown]
  - Papillitis [Not Recovered/Not Resolved]
  - Iridocyclitis [Not Recovered/Not Resolved]
  - Visual acuity reduced [Not Recovered/Not Resolved]
